FAERS Safety Report 13582530 (Version 1)
Quarter: 2017Q2

REPORT INFORMATION
  Report Type: Report from Study
  Country: US (occurrence: US)
  Receive Date: 20170525
  Receipt Date: 20170525
  Transmission Date: 20170830
  Serious: Yes (Death)
  Sender: FDA-Public Use
  Company Number: US-BAYER-2017-093230

PATIENT
  Age: 91 Year
  Sex: Male

DRUGS (7)
  1. PRILOSEC [Concomitant]
     Active Substance: OMEPRAZOLE MAGNESIUM
     Dosage: 20 MG, UNK
     Route: 048
  2. ATENOLOL. [Concomitant]
     Active Substance: ATENOLOL
     Dosage: 50 MG, UNK
     Route: 048
  3. CENTRUM [Concomitant]
     Active Substance: VITAMINS
     Dosage: 1
     Route: 048
  4. REMERON [Concomitant]
     Active Substance: MIRTAZAPINE
     Dosage: 15 MG, UNK
     Route: 048
  5. ANUSOL HC [Concomitant]
     Active Substance: HYDROCORTISONE
     Dosage: 25 MG, BID
     Route: 054
  6. ASPIRIN. [Suspect]
     Active Substance: ASPIRIN
     Dosage: 81 MG, UNK
     Route: 048
  7. METOPROLOL. [Concomitant]
     Active Substance: METOPROLOL
     Indication: PALPITATIONS
     Dosage: 12.5 MG, PRN
     Route: 048

REACTIONS (3)
  - Subdural haematoma [Fatal]
  - Pneumonia [Fatal]
  - Fall [None]
